FAERS Safety Report 10420153 (Version 1)
Quarter: 2014Q3

REPORT INFORMATION
  Report Type: Report from Study
  Country: US (occurrence: None)
  Receive Date: 20140804
  Receipt Date: 20140804
  Transmission Date: 20150326
  Serious: Yes (Hospitalization)
  Sender: FDA-Public Use
  Company Number: 2012US006318

PATIENT
  Age: 33 Year
  Sex: Male
  Weight: 109.8 kg

DRUGS (2)
  1. GLASSIA [Suspect]
     Active Substance: .ALPHA.1-PROTEINASE INHIBITOR HUMAN
     Indication: ALPHA-1 ANTI-TRYPSIN DEFICIENCY
     Route: 042
     Dates: start: 20110429
  2. XANAX [Concomitant]
     Active Substance: ALPRAZOLAM

REACTIONS (15)
  - Cystitis [None]
  - Ammonia increased [None]
  - Back pain [None]
  - Viral infection [None]
  - Vomiting [None]
  - Dyspnoea [None]
  - Bacteraemia [None]
  - Eye swelling [None]
  - Pain [None]
  - Nerve injury [None]
  - Pleural effusion [None]
  - Pain in extremity [None]
  - Neck pain [None]
  - Musculoskeletal pain [None]
  - Condition aggravated [None]

NARRATIVE: CASE EVENT DATE: 2011
